FAERS Safety Report 18789166 (Version 1)
Quarter: 2021Q1

REPORT INFORMATION
  Report Type: Spontaneous
  Country: US (occurrence: US)
  Receive Date: 20210126
  Receipt Date: 20210126
  Transmission Date: 20210419
  Serious: Yes (Death)
  Sender: FDA-Public Use
  Company Number: None

PATIENT
  Sex: Male

DRUGS (1)
  1. CINACALCET 30MG TABLETS [Suspect]
     Active Substance: CINACALCET

REACTIONS (2)
  - COVID-19 [None]
  - Disease complication [None]
